FAERS Safety Report 9632366 (Version 1)
Quarter: 2013Q4

REPORT INFORMATION
  Report Type: Spontaneous
  Country: US (occurrence: None)
  Receive Date: 20131018
  Receipt Date: 20131018
  Transmission Date: 20140711
  Serious: Yes (Disabling)
  Sender: FDA-Public Use
  Company Number: None

PATIENT
  Age: 57 Year
  Sex: Male
  Weight: 77.57 kg

DRUGS (2)
  1. DAPTOMYCIN [Suspect]
     Indication: POST PROCEDURAL INFECTION
     Route: 042
     Dates: start: 20130701, end: 20130812
  2. ROCEPHIN [Concomitant]

REACTIONS (2)
  - Tendon rupture [None]
  - Muscle spasms [None]
